FAERS Safety Report 8021274-4 (Version None)
Quarter: 2012Q1

REPORT INFORMATION
  Report Type: 
  Country: None (occurrence: None)
  Receive Date: 20120104
  Receipt Date: 20111222
  Transmission Date: 20120608
  Serious: Yes (Hospitalization)
  Sender: FDA-Public Use
  Company Number: US-BAYER-2011-065955

PATIENT
  Age: 36 Year
  Sex: Female
  Weight: 79.365 kg

DRUGS (3)
  1. AZITHROMYCIN [Concomitant]
     Dosage: 250 MG, UNK
     Dates: start: 20091116
  2. CHERATUSSIN AC [Concomitant]
     Indication: COUGH
     Dosage: UNK UNK, BID
     Route: 048
     Dates: start: 20091116
  3. YAZ [Suspect]
     Indication: ACNE
     Dosage: UNK
     Route: 048
     Dates: start: 20070807, end: 20100101

REACTIONS (6)
  - EMOTIONAL DISTRESS [None]
  - PULMONARY EMBOLISM [None]
  - DEEP VEIN THROMBOSIS [None]
  - ANXIETY [None]
  - PAIN IN EXTREMITY [None]
  - OEDEMA PERIPHERAL [None]
